FAERS Safety Report 4641981-0 (Version None)
Quarter: 2005Q2

REPORT INFORMATION
  Report Type: 
  Country: None (occurrence: None)
  Receive Date: 20050421
  Receipt Date: 20050407
  Transmission Date: 20051028
  Serious: Yes (Hospitalization, Other)
  Sender: FDA-Public Use
  Company Number: 2005056953

PATIENT
  Age: 69 Year
  Sex: Male
  Weight: 95.2554 kg

DRUGS (3)
  1. CELECOXIB (CELECOXIB) [Suspect]
     Indication: OSTEOARTHRITIS
     Dosage: (200 MG)
     Dates: start: 20030101, end: 20050128
  2. RABEPRAZOLE SODIUM [Concomitant]
  3. RANITIDINE HYDROCHLORIDE [Concomitant]

REACTIONS (4)
  - ARRHYTHMIA [None]
  - DRUG INEFFECTIVE [None]
  - MYOCARDIAL INFARCTION [None]
  - PNEUMONIA [None]
